FAERS Safety Report 7582314-X (Version None)
Quarter: 2011Q2

REPORT INFORMATION
  Report Type: 
  Country: None (occurrence: None)
  Receive Date: 20110623
  Receipt Date: 20110609
  Transmission Date: 20111010
  Serious: Yes (Other)
  Sender: FDA-Public Use
  Company Number: MX-1186697

PATIENT
  Age: 86 Year
  Sex: Male
  Weight: 61 kg

DRUGS (3)
  1. CAPTOPRIL [Concomitant]
  2. BSS [Suspect]
  3. BSS [Suspect]

REACTIONS (1)
  - ENDOPHTHALMITIS [None]
